FAERS Safety Report 8905209 (Version 2)
Quarter: 2013Q4

REPORT INFORMATION
  Report Type: Report from Study
  Country: CA (occurrence: CA)
  Receive Date: 20121112
  Receipt Date: 20131216
  Transmission Date: 20140711
  Serious: Yes (Other)
  Sender: FDA-Public Use
  Company Number: PHHY2012CA103608

PATIENT
  Sex: Female

DRUGS (1)
  1. ZOMETA [Suspect]
     Indication: BREAST CANCER
     Dosage: 4 MG, EVERY 6 MONTHS
     Route: 042
     Dates: start: 20101104

REACTIONS (5)
  - Lower respiratory tract infection [Unknown]
  - Eye infection viral [Unknown]
  - Influenza [Unknown]
  - Emotional disorder [Unknown]
  - Malaise [Unknown]
